FAERS Safety Report 5815461-0 (Version None)
Quarter: 2008Q3

REPORT INFORMATION
  Report Type: 
  Country: None (occurrence: None)
  Receive Date: 20080715
  Receipt Date: 20080710
  Transmission Date: 20090109
  Serious: Yes (Life-Threatening, Hospitalization)
  Sender: FDA-Public Use
  Company Number: 2008SP012270

PATIENT
  Age: 48 Year
  Sex: Male

DRUGS (2)
  1. TEMOZOLOMIDE [Suspect]
     Indication: METASTASES TO CENTRAL NERVOUS SYSTEM
     Dosage: 135 MG; PO
     Route: 048
     Dates: start: 20080528, end: 20080616
  2. TEMOZOLOMIDE [Suspect]
     Indication: NON-SMALL CELL LUNG CANCER METASTATIC
     Dosage: 135 MG; PO
     Route: 048
     Dates: start: 20080528, end: 20080616

REACTIONS (3)
  - CHEST PAIN [None]
  - DYSPNOEA [None]
  - EMBOLISM [None]
